FAERS Safety Report 11242761 (Version 1)
Quarter: 2015Q3

REPORT INFORMATION
  Report Type: Report from Study
  Country: DE (occurrence: DE)
  Receive Date: 20150707
  Receipt Date: 20150707
  Transmission Date: 20151125
  Serious: Yes (Other)
  Sender: FDA-Public Use
  Company Number: DE-ROCHE-1601892

PATIENT

DRUGS (2)
  1. MYCOPHENOLATE MOFETIL. [Suspect]
     Active Substance: MYCOPHENOLATE MOFETIL
     Indication: PROPHYLAXIS AGAINST TRANSPLANT REJECTION
     Route: 065
  2. CYCLOSPORIN [Suspect]
     Active Substance: CYCLOSPORINE
     Indication: PROPHYLAXIS AGAINST TRANSPLANT REJECTION
     Route: 065

REACTIONS (7)
  - Pancytopenia [Unknown]
  - Duodenal ulcer haemorrhage [Unknown]
  - Large intestine perforation [Unknown]
  - Squamous cell carcinoma of skin [Unknown]
  - Gastrointestinal haemorrhage [Unknown]
  - Agranulocytosis [Unknown]
  - Rectal haemorrhage [Unknown]
